FAERS Safety Report 14507322 (Version 2)
Quarter: 2018Q1

REPORT INFORMATION
  Report Type: Spontaneous
  Country: US (occurrence: US)
  Receive Date: 20180208
  Receipt Date: 20180219
  Transmission Date: 20180509
  Serious: Yes (Hospitalization)
  Sender: FDA-Public Use
  Company Number: US-MAYNE PHARMA-2018MYN000189

PATIENT

DRUGS (5)
  1. LAMICTAL [Concomitant]
     Active Substance: LAMOTRIGINE
     Indication: MENTAL DISORDER
     Dosage: 100 MG, BID
     Route: 048
  2. CLOZAPINE. [Suspect]
     Active Substance: CLOZAPINE
     Indication: MENTAL DISORDER
     Dosage: 50MG IN THE MORNING AND 100 MG AT BEDTIME
     Route: 048
  3. POTASSIUM CHLORIDE. [Concomitant]
     Active Substance: POTASSIUM CHLORIDE
     Indication: ROUTINE HEALTH MAINTENANCE
     Dosage: 10 MEQ, BID
     Route: 048
  4. SEROQUEL [Concomitant]
     Active Substance: QUETIAPINE FUMARATE
     Indication: MENTAL DISORDER
     Dosage: 100 MG, QD
     Route: 048
  5. HYDROCREAM BASE [Concomitant]
     Indication: RASH
     Dosage: 28 UNK, BID
     Route: 061

REACTIONS (6)
  - Suicidal ideation [Recovering/Resolving]
  - Sinus tachycardia [Unknown]
  - Hallucination, auditory [Not Recovered/Not Resolved]
  - Rash [Unknown]
  - Psychotic disorder [Unknown]
  - Depression [Unknown]

NARRATIVE: CASE EVENT DATE: 201801
